FAERS Safety Report 5186614-2 (Version None)
Quarter: 2006Q4

REPORT INFORMATION
  Report Type: 
  Country: None (occurrence: None)
  Receive Date: 20061220
  Receipt Date: 20060119
  Transmission Date: 20070319
  Serious: No
  Sender: FDA-Public Use
  Company Number: US-AMGEN-US165807

PATIENT
  Age: 88 Year
  Sex: Male

DRUGS (3)
  1. ENBREL [Suspect]
     Indication: PSORIASIS
     Route: 065
     Dates: start: 20040922
  2. CLONIDINE [Concomitant]
     Route: 065
  3. NORVASC [Concomitant]
     Route: 065

REACTIONS (1)
  - TREMOR [None]
